FAERS Safety Report 8347038-X (Version None)
Quarter: 2012Q2

REPORT INFORMATION
  Report Type: 
  Country: None (occurrence: None)
  Receive Date: 20120509
  Receipt Date: 20120504
  Transmission Date: 20120825
  Serious: Yes (Death)
  Sender: FDA-Public Use
  Company Number: PHHO2012BF003946

PATIENT
  Sex: Female

DRUGS (1)
  1. CGP 56697 [Suspect]
     Indication: MALARIA
     Dosage: UNK
     Route: 048
     Dates: start: 20101204

REACTIONS (1)
  - SEPSIS [None]
